FAERS Safety Report 4720249-8 (Version None)
Quarter: 2005Q3

REPORT INFORMATION
  Report Type: 
  Country: None (occurrence: None)
  Receive Date: 20050721
  Receipt Date: 20050720
  Transmission Date: 20060218
  Serious: Yes (Other)
  Sender: FDA-Public Use
  Company Number: PHNU2005DE02606

PATIENT
  Sex: Male
  Weight: 21 kg

DRUGS (2)
  1. TIMOX [Suspect]
     Indication: COMPLEX PARTIAL SEIZURES
     Dosage: 450 MG/D
     Route: 048
     Dates: start: 19060222
  2. OSPOLOT [Concomitant]
     Indication: COMPLEX PARTIAL SEIZURES
     Dosage: 150 MG/D
     Route: 048
     Dates: end: 20050322

REACTIONS (3)
  - DENTAL CARIES [None]
  - ENAMEL ANOMALY [None]
  - TOOTH DISCOLOURATION [None]
